FAERS Safety Report 8090349-6 (Version None)
Quarter: 2012Q1

REPORT INFORMATION
  Report Type: 
  Country: None (occurrence: None)
  Receive Date: 20120124
  Receipt Date: 20120117
  Transmission Date: 20120608
  Serious: Yes (Death)
  Sender: FDA-Public Use
  Company Number: 2011NUEUSA00060

PATIENT

DRUGS (1)
  1. NUEDEXTA [Suspect]

REACTIONS (1)
  - DEATH [None]
